FAERS Safety Report 9596998 (Version 2)
Quarter: 2013Q4

REPORT INFORMATION
  Report Type: Spontaneous
  Country: DE (occurrence: DE)
  Receive Date: 20131004
  Receipt Date: 20131016
  Transmission Date: 20140711
  Serious: Yes (Other)
  Sender: FDA-Public Use
  Company Number: PHHY2013DE107567

PATIENT
  Age: 57 Year
  Sex: 0

DRUGS (2)
  1. VALPROIC ACID [Suspect]
     Indication: SCHIZOAFFECTIVE DISORDER
  2. LORAZEPAM [Suspect]
     Indication: SCHIZOAFFECTIVE DISORDER
     Dosage: 6 MG, PER DAY

REACTIONS (7)
  - Hyperammonaemic encephalopathy [Recovering/Resolving]
  - Psychomotor hyperactivity [Recovering/Resolving]
  - Carnitine decreased [Unknown]
  - Stupor [Unknown]
  - Somnolence [Unknown]
  - Drug withdrawal syndrome [Recovered/Resolved]
  - Overdose [Unknown]
